FAERS Safety Report 23631161 (Version 14)
Quarter: 2025Q1

REPORT INFORMATION
  Report Type: Report from Study
  Country: US (occurrence: US)
  Receive Date: 20240314
  Receipt Date: 20250317
  Transmission Date: 20250409
  Serious: Yes (Hospitalization, Other)
  Sender: TAKEDA
  Company Number: US-TAKEDA-2024TUS010327

PATIENT
  Sex: Female
  Weight: 73 kg

DRUGS (23)
  1. HUMAN IMMUNOGLOBULIN G [Suspect]
     Active Substance: HUMAN IMMUNOGLOBULIN G
     Indication: Immunodeficiency common variable
     Dosage: 12 GRAM, 1/WEEK
     Dates: start: 20240119
  2. HUMAN IMMUNOGLOBULIN G [Suspect]
     Active Substance: HUMAN IMMUNOGLOBULIN G
     Dosage: 16 GRAM, 1/WEEK
  3. HUMAN IMMUNOGLOBULIN G [Suspect]
     Active Substance: HUMAN IMMUNOGLOBULIN G
     Dosage: 15 GRAM, 1/WEEK
  4. EPINEPHRINE [Concomitant]
     Active Substance: EPINEPHRINE
  5. ACETAMINOPHEN [Concomitant]
     Active Substance: ACETAMINOPHEN
  6. ACETAMINOPHEN\HYDROCODONE [Concomitant]
     Active Substance: ACETAMINOPHEN\HYDROCODONE
  7. NYSTATIN [Concomitant]
     Active Substance: NYSTATIN
  8. ALBUTEROL SULFATE [Concomitant]
     Active Substance: ALBUTEROL SULFATE
  9. LIDOCAINE [Concomitant]
     Active Substance: LIDOCAINE
  10. FLUTICASONE PROPIONATE [Concomitant]
     Active Substance: FLUTICASONE PROPIONATE
  11. ADVAIR HFA [Concomitant]
     Active Substance: FLUTICASONE PROPIONATE\SALMETEROL XINAFOATE
  12. OXYGEN [Concomitant]
     Active Substance: OXYGEN
  13. DIPHENHYDRAMINE [Concomitant]
     Active Substance: DIPHENHYDRAMINE
  14. ATENOLOL [Concomitant]
     Active Substance: ATENOLOL
  15. CETIRIZINE HCL [Concomitant]
     Active Substance: CETIRIZINE HYDROCHLORIDE
  16. ALPRAZOLAM [Concomitant]
     Active Substance: ALPRAZOLAM
  17. CYCLOBENZAPRINE HYDROCHLORIDE [Concomitant]
     Active Substance: CYCLOBENZAPRINE HYDROCHLORIDE
  18. CEFDINIR [Concomitant]
     Active Substance: CEFDINIR
  19. BENZONATATE [Concomitant]
     Active Substance: BENZONATATE
  20. AMOXICILLIN\CLAVULANATE POTASSIUM [Concomitant]
     Active Substance: AMOXICILLIN\CLAVULANATE POTASSIUM
  21. DIPHENHYDRAMINE HYDROCHLORIDE [Concomitant]
     Active Substance: DIPHENHYDRAMINE HYDROCHLORIDE
  22. Lmx [Concomitant]
  23. ALBUTEROL SULFATE [Concomitant]
     Active Substance: ALBUTEROL SULFATE

REACTIONS (13)
  - Foreign body in throat [Unknown]
  - Pneumonia [Not Recovered/Not Resolved]
  - Cancer in remission [Unknown]
  - Neoplasm malignant [Unknown]
  - Pneumonia bacterial [Not Recovered/Not Resolved]
  - Weight decreased [Unknown]
  - Chronic obstructive pulmonary disease [Unknown]
  - Brain fog [Unknown]
  - Emphysema [Unknown]
  - Lung disorder [Unknown]
  - Somnolence [Unknown]
  - Blood pressure increased [Unknown]
  - Decreased appetite [Unknown]
